FAERS Safety Report 24834303 (Version 1)
Quarter: 2025Q1

REPORT INFORMATION
  Report Type: Spontaneous
  Country: US (occurrence: None)
  Receive Date: 20250110
  Receipt Date: 20250110
  Transmission Date: 20250409
  Serious: No
  Sender: FDA-CTU
  Company Number: None

PATIENT
  Age: 83 Year
  Sex: Male

DRUGS (1)
  1. AMIODARONE HYDROCHLORIDE [Suspect]
     Active Substance: AMIODARONE HYDROCHLORIDE

REACTIONS (1)
  - Pulmonary fibrosis [None]

NARRATIVE: CASE EVENT DATE: 20241018
